FAERS Safety Report 8591478-0 (Version None)
Quarter: 2012Q3

REPORT INFORMATION
  Report Type: 
  Country: None (occurrence: None)
  Receive Date: 20120814
  Receipt Date: 20120806
  Transmission Date: 20120928
  Serious: Yes (Other)
  Sender: FDA-Public Use
  Company Number: US-SANOFI-AVENTIS-2012SA056362

PATIENT
  Sex: Male

DRUGS (2)
  1. LANTUS [Suspect]
     Dosage: 18-21 UNITS DAILY ACCORDING TO WHAT HE IS PLANNING ON DOING THAT DAY
     Route: 058
  2. SOLOSTAR [Suspect]

REACTIONS (2)
  - LEG AMPUTATION [None]
  - PRODUCT QUALITY ISSUE [None]
